FAERS Safety Report 21250247 (Version 1)
Quarter: 2022Q3

REPORT INFORMATION
  Report Type: Report from Study
  Country: EG (occurrence: EG)
  Receive Date: 20220824
  Receipt Date: 20220824
  Transmission Date: 20221027
  Serious: Yes (Other)
  Sender: FDA-Public Use
  Company Number: EG-NOVARTISPH-NVSC2022EG189015

PATIENT
  Sex: Female

DRUGS (1)
  1. COSENTYX [Suspect]
     Active Substance: SECUKINUMAB
     Indication: Rheumatoid arthritis
     Dosage: 15 DAYS THEN 1 PREFILLED OF 150MG ONCE MONTHLY
     Route: 058

REACTIONS (3)
  - Rheumatoid arthritis [Unknown]
  - Swelling [Unknown]
  - Off label use [Unknown]
